FAERS Safety Report 8650425 (Version 3)
Quarter: 2013Q1

REPORT INFORMATION
  Report Type: Spontaneous
  Country: BR (occurrence: BR)
  Receive Date: 20120705
  Receipt Date: 20130116
  Transmission Date: 20140127
  Serious: Yes (Other)
  Sender: FDA-Public Use
  Company Number: BR-ASTRAZENECA-2012SE43325

PATIENT
  Age: 66 Year
  Sex: Female
  Weight: 63 kg

DRUGS (5)
  1. CRESTOR [Suspect]
     Indication: BLOOD CHOLESTEROL INCREASED
     Route: 048
     Dates: start: 20100330, end: 20120625
  2. CRESTOR [Suspect]
     Indication: BLOOD CHOLESTEROL INCREASED
     Route: 048
  3. DIOVAN TRIPLO [Concomitant]
     Route: 048
  4. CLOPIDOGREL [Concomitant]
     Route: 048
  5. BETASERC [Concomitant]
     Route: 048

REACTIONS (2)
  - Cerebrovascular accident [Recovered/Resolved]
  - Off label use [Recovered/Resolved]
